FAERS Safety Report 16580876 (Version 3)
Quarter: 2019Q3

REPORT INFORMATION
  Report Type: Spontaneous
  Country: US (occurrence: US)
  Receive Date: 20190716
  Receipt Date: 20190822
  Transmission Date: 20191004
  Serious: No
  Sender: FDA-Public Use
  Company Number: US-PFIZER INC-2019298250

PATIENT
  Age: 76 Year
  Sex: Female

DRUGS (3)
  1. IBRANCE [Suspect]
     Active Substance: PALBOCICLIB
     Indication: BREAST CANCER METASTATIC
     Dosage: 100 MG, CYCLIC (TAKEN FOR 21 DAYS ON, 7 DAYS OFF)
     Route: 048
     Dates: start: 201905
  2. FASLODEX [Concomitant]
     Active Substance: FULVESTRANT
     Indication: BREAST CANCER
     Dosage: 500 MG, Q (EVERY) 28 DAYS (DAY 1, 15, 29 THEN MONTHLY)
     Dates: start: 201905
  3. XGEVA [Concomitant]
     Active Substance: DENOSUMAB
     Indication: BREAST CANCER
     Dosage: 120 MG, Q (EVERY) 28 DAYS
     Dates: start: 201905

REACTIONS (1)
  - Weight decreased [Unknown]
